FAERS Safety Report 9644684 (Version 1)
Quarter: 2013Q4

REPORT INFORMATION
  Report Type: Spontaneous
  Country: US (occurrence: US)
  Receive Date: 20131025
  Receipt Date: 20131025
  Transmission Date: 20140711
  Serious: Yes (Hospitalization)
  Sender: FDA-Public Use
  Company Number: US-BAYER-2013-128050

PATIENT
  Age: 45 Year
  Sex: Female

DRUGS (13)
  1. YASMIN [Suspect]
  2. LEVOTHYROXINE [Concomitant]
     Indication: HYPOTHYROIDISM
     Dosage: 75 ?G, LONG TERM USE
     Route: 048
  3. ALPRAZOLAM [Concomitant]
     Dosage: 0.5 MG, UNK
     Route: 048
     Dates: start: 20040917
  4. HYOSCYAMINE [Concomitant]
     Dosage: 0.125 MG, UNK
     Route: 048
     Dates: start: 20040917
  5. INDOMETHACIN [Concomitant]
     Dosage: 25 MG, UNK
     Route: 048
     Dates: start: 20040928
  6. HYDROCORTISONE [Concomitant]
     Dosage: 0.2 %, UNK
     Route: 061
     Dates: start: 20040930
  7. PROTONIX [Concomitant]
     Dosage: 40 MG, UNK
     Route: 048
     Dates: start: 20041018
  8. CLIDINIUM [Concomitant]
     Dosage: UNK
     Dates: start: 20041018
  9. MEPERGAN [Concomitant]
     Indication: PAIN
     Dosage: UNK
     Dates: start: 20041019
  10. PROMETHAZINE [Concomitant]
     Indication: PAIN
     Dosage: UNK
     Dates: start: 20041019
  11. LORTAB [Concomitant]
  12. PEPCID [Concomitant]
  13. PHENERGAN [Concomitant]

REACTIONS (2)
  - Portal vein thrombosis [None]
  - Mesenteric vein thrombosis [None]
